FAERS Safety Report 5684381-7 (Version None)
Quarter: 2008Q1

REPORT INFORMATION
  Report Type: 
  Country: None (occurrence: None)
  Receive Date: 20080327
  Receipt Date: 20080327
  Transmission Date: 20080703
  Serious: No
  Sender: FDA-Public Use
  Company Number: None

PATIENT
  Age: 43 Year
  Sex: Female
  Weight: 58.9676 kg

DRUGS (1)
  1. GEODON [Suspect]
     Indication: SCHIZOPHRENIA, PARANOID TYPE
     Dosage: 80MG BID PO
     Route: 048

REACTIONS (3)
  - ILL-DEFINED DISORDER [None]
  - TARDIVE DYSKINESIA [None]
  - TONGUE BITING [None]
